FAERS Safety Report 13987484 (Version 1)
Quarter: 2017Q3

REPORT INFORMATION
  Report Type: Spontaneous
  Country: AU (occurrence: AU)
  Receive Date: 20170919
  Receipt Date: 20170919
  Transmission Date: 20171128
  Serious: Yes (Disabling)
  Sender: FDA-Public Use
  Company Number: AU-PFIZER INC-2017309722

PATIENT
  Age: 59 Year
  Sex: Male
  Weight: 87 kg

DRUGS (7)
  1. LYRICA [Suspect]
     Active Substance: PREGABALIN
     Indication: NEURALGIA
     Dosage: 150 MG, DAILY (AT NIGHT)
     Route: 048
     Dates: end: 20170725
  2. LYRICA [Suspect]
     Active Substance: PREGABALIN
     Indication: BACK PAIN
     Dosage: 175 MG, UNK
     Route: 048
  3. VALPRO [Concomitant]
     Active Substance: VALPROATE SODIUM
     Indication: FIBROMYALGIA
     Dosage: 800 MG, UNK
     Route: 048
  4. ALPRAX [Concomitant]
     Indication: DEPRESSION
  5. LYRICA [Suspect]
     Active Substance: PREGABALIN
     Indication: SPINAL DISORDER
     Dosage: 600 MG, UNK
     Route: 048
  6. ALPRAX [Concomitant]
     Indication: ANXIETY
     Dosage: 4 MG, AT NIGHT
     Route: 048
  7. METHOBLASTIN /00113801/ [Concomitant]
     Active Substance: METHOTREXATE
     Indication: PSORIATIC ARTHROPATHY
     Dosage: 20 MG, WEEKLY
     Route: 048

REACTIONS (13)
  - Diarrhoea [Recovered/Resolved]
  - Feeling cold [Recovered/Resolved]
  - Dizziness [Recovered/Resolved]
  - Headache [Recovered/Resolved]
  - Hot flush [Recovered/Resolved]
  - Tremor [Not Recovered/Not Resolved]
  - Nausea [Not Recovered/Not Resolved]
  - Drug tolerance [Unknown]
  - Somnolence [Recovered/Resolved]
  - Drug withdrawal syndrome [Not Recovered/Not Resolved]
  - Hyperhidrosis [Recovered/Resolved]
  - Gait disturbance [Recovered/Resolved]
  - Feeding disorder [Not Recovered/Not Resolved]
